FAERS Safety Report 24370500 (Version 1)
Quarter: 2024Q3

REPORT INFORMATION
  Report Type: Report from Study
  Country: US (occurrence: US)
  Receive Date: 20240927
  Receipt Date: 20240927
  Transmission Date: 20241017
  Serious: Yes (Hospitalization, Other)
  Sender: TAKEDA
  Company Number: US-TAKEDA-2024TUS095134

PATIENT
  Sex: Male

DRUGS (4)
  1. TEDUGLUTIDE [Suspect]
     Active Substance: TEDUGLUTIDE
     Indication: Product used for unknown indication
     Dosage: 0.15 MILLILITER, QD
     Route: 058
     Dates: start: 20240722
  2. TEDUGLUTIDE [Suspect]
     Active Substance: TEDUGLUTIDE
     Indication: Product used for unknown indication
     Dosage: 0.15 MILLILITER, QD
     Route: 058
     Dates: start: 20240722
  3. TEDUGLUTIDE [Suspect]
     Active Substance: TEDUGLUTIDE
     Indication: Product used for unknown indication
     Dosage: 0.15 MILLILITER, QD
     Route: 058
     Dates: start: 20240722
  4. TEDUGLUTIDE [Suspect]
     Active Substance: TEDUGLUTIDE
     Indication: Product used for unknown indication
     Dosage: 0.15 MILLILITER, QD
     Route: 058
     Dates: start: 20240722

REACTIONS (3)
  - SARS-CoV-2 test positive [Unknown]
  - Pericardial effusion [Unknown]
  - Viral infection [Unknown]
